FAERS Safety Report 10418903 (Version 2)
Quarter: 2014Q3

REPORT INFORMATION
  Report Type: Spontaneous
  Country: RO (occurrence: RO)
  Receive Date: 20140829
  Receipt Date: 20140829
  Transmission Date: 20150326
  Serious: Yes (Death)
  Sender: FDA-Public Use
  Company Number: RO-ROCHE-728510

PATIENT
  Age: 52 Year
  Sex: Male

DRUGS (28)
  1. ADRIBLASTIN [Suspect]
     Active Substance: DOXORUBICIN HYDROCHLORIDE
     Dosage: FREQUECNY: 1 DAY,
     Route: 042
     Dates: end: 20100324
  2. ADRIBLASTIN [Suspect]
     Active Substance: DOXORUBICIN HYDROCHLORIDE
     Dosage: FREQUECNY: 1 DAY,
     Route: 042
     Dates: end: 20100616
  3. PREDNISONE. [Suspect]
     Active Substance: PREDNISONE
     Indication: DIFFUSE LARGE B-CELL LYMPHOMA
     Route: 065
     Dates: start: 201003, end: 201006
  4. VINCRISTINE [Suspect]
     Active Substance: VINCRISTINE
     Dosage: FREQUENCY: 1 DAY.
     Route: 042
     Dates: end: 20100616
  5. DEXAMETHASONE. [Concomitant]
     Active Substance: DEXAMETHASONE
     Dosage: FREQUENCY: 5 DAYS,
     Route: 042
     Dates: end: 20100505
  6. CYCLOPHOSPHAMIDE. [Suspect]
     Active Substance: CYCLOPHOSPHAMIDE
     Indication: DIFFUSE LARGE B-CELL LYMPHOMA
     Dosage: FREQUENCY: 1 DAY, CYCLES RECEIVED: 7
     Route: 042
     Dates: start: 20100210, end: 20100414
  7. CYCLOPHOSPHAMIDE. [Suspect]
     Active Substance: CYCLOPHOSPHAMIDE
     Dosage: FREQUENCY: 1 DAY
     Route: 042
     Dates: end: 20100414
  8. VINCRISTINE [Suspect]
     Active Substance: VINCRISTINE
     Indication: DIFFUSE LARGE B-CELL LYMPHOMA
     Dosage: FREQUENCY: 1 DAY. CYCLES RECEIVED FROM ONSET: 7
     Route: 042
     Dates: start: 20100210, end: 20100303
  9. VINCRISTINE [Suspect]
     Active Substance: VINCRISTINE
     Dosage: FREQUENCY: 1 DAY.
     Route: 042
     Dates: end: 20100324
  10. DEXAMETHASONE. [Concomitant]
     Active Substance: DEXAMETHASONE
     Dosage: FREQUENCY: 5 DAYS,
     Route: 042
     Dates: end: 20100324
  11. DEXAMETHASONE. [Concomitant]
     Active Substance: DEXAMETHASONE
     Dosage: FREQUENCY: 5 DAYS,
     Route: 042
     Dates: end: 20100616
  12. CYCLOPHOSPHAMIDE. [Suspect]
     Active Substance: CYCLOPHOSPHAMIDE
     Dosage: FREQUENCY: 1 DAY
     Route: 042
     Dates: end: 20100616
  13. MEFLOQUINE [Concomitant]
     Active Substance: MEFLOQUINE
     Indication: PROGRESSIVE MULTIFOCAL LEUKOENCEPHALOPATHY
     Dosage: FREQUENCY : 4 TABLETS PER WEEK.
     Route: 048
  14. DEXAMETHASONE. [Concomitant]
     Active Substance: DEXAMETHASONE
     Dosage: FREQUENCY: 5 DAYS, TOTAL NUMBER OF CYCLES RECEIVED: 7
     Route: 042
     Dates: start: 20100210, end: 20100303
  15. CYCLOPHOSPHAMIDE. [Suspect]
     Active Substance: CYCLOPHOSPHAMIDE
     Route: 042
     Dates: end: 20100324
  16. ADRIBLASTIN [Suspect]
     Active Substance: DOXORUBICIN HYDROCHLORIDE
     Indication: DIFFUSE LARGE B-CELL LYMPHOMA
     Dosage: FREQUECNY: 1 DAY, TOTAL NUMBER OF CYCLES RECEIVED BY TIME OF EVENT ONSET: 7
     Route: 042
     Dates: start: 20100210, end: 20100303
  17. MABTHERA [Suspect]
     Active Substance: RITUXIMAB
     Indication: DIFFUSE LARGE B-CELL LYMPHOMA
     Dosage: DOSE: 700 MG, FREQUENCY: 1 DAY
     Route: 042
  18. CYCLOPHOSPHAMIDE. [Suspect]
     Active Substance: CYCLOPHOSPHAMIDE
     Dosage: FREQUENCY: 1 DAY
     Route: 042
     Dates: end: 20100505
  19. ADRIBLASTIN [Suspect]
     Active Substance: DOXORUBICIN HYDROCHLORIDE
     Dosage: FREQUECNY: 1 DAY,
     Route: 042
     Dates: end: 20100414
  20. VINCRISTINE [Suspect]
     Active Substance: VINCRISTINE
     Dosage: FREQUENCY: 1 DAY.
     Route: 042
     Dates: end: 20100414
  21. VINCRISTINE [Suspect]
     Active Substance: VINCRISTINE
     Dosage: FREQUENCY: 1 DAY.
     Route: 042
     Dates: end: 20100505
  22. ADRIBLASTIN [Suspect]
     Active Substance: DOXORUBICIN HYDROCHLORIDE
     Dosage: FREQUECNY: 1 DAY,
     Route: 042
     Dates: end: 20100505
  23. ADRIBLASTIN [Suspect]
     Active Substance: DOXORUBICIN HYDROCHLORIDE
     Dosage: FREQUECNY: 1 DAY,
     Route: 042
     Dates: end: 20100526
  24. CITARABINA [Concomitant]
     Active Substance: CYTARABINE
     Route: 065
     Dates: start: 20100626
  25. DEXAMETHASONE. [Concomitant]
     Active Substance: DEXAMETHASONE
     Dosage: FREQUENCY: 5 DAYS,
     Route: 042
     Dates: end: 20100414
  26. DEXAMETHASONE. [Concomitant]
     Active Substance: DEXAMETHASONE
     Dosage: FREQUENCY: 5 DAYS,
     Route: 042
     Dates: end: 20100526
  27. CYCLOPHOSPHAMIDE. [Suspect]
     Active Substance: CYCLOPHOSPHAMIDE
     Dosage: FREQUENCY: 1 DAY
     Route: 042
     Dates: end: 20100526
  28. VINCRISTINE [Suspect]
     Active Substance: VINCRISTINE
     Dosage: FREQUENCY: 1 DAY.
     Route: 042
     Dates: end: 20100526

REACTIONS (1)
  - Progressive multifocal leukoencephalopathy [Fatal]

NARRATIVE: CASE EVENT DATE: 20100626
